FAERS Safety Report 10396745 (Version 1)
Quarter: 2014Q3

REPORT INFORMATION
  Report Type: Spontaneous
  Country: DE (occurrence: DE)
  Receive Date: 20140820
  Receipt Date: 20140820
  Transmission Date: 20150326
  Serious: Yes (Other)
  Sender: FDA-Public Use
  Company Number: DE-GLAXOSMITHKLINE-D0083483A

PATIENT
  Age: 22 Year
  Sex: Female
  Weight: 60 kg

DRUGS (2)
  1. MALARONE [Suspect]
     Active Substance: ATOVAQUONE\PROGUANIL HYDROCHLORIDE
     Indication: MALARIA PROPHYLAXIS
     Route: 048
     Dates: start: 20140223, end: 20140330
  2. ETHINYLOESTRADIOL + DIENOGEST [Concomitant]
     Indication: ORAL CONTRACEPTION
     Dosage: 2.03MG PER DAY
     Route: 048
     Dates: start: 2011, end: 201404

REACTIONS (4)
  - Lymphadenopathy [Recovered/Resolved]
  - Granulocytopenia [Recovered/Resolved]
  - Neutropenia [Recovered/Resolved]
  - Fatigue [Recovered/Resolved]

NARRATIVE: CASE EVENT DATE: 2014
